FAERS Safety Report 12167963 (Version 1)
Quarter: 2016Q1

REPORT INFORMATION
  Report Type: Spontaneous
  Country: US (occurrence: None)
  Receive Date: 20160309
  Receipt Date: 20160309
  Transmission Date: 20160526
  Serious: Yes (Other)
  Sender: FDA-Public Use
  Company Number: None

PATIENT
  Age: 62 Year
  Sex: Female
  Weight: 62.14 kg

DRUGS (1)
  1. FLUOXETINE 20MG GENERIC THROUGH WALMART [Suspect]
     Active Substance: FLUOXETINE HYDROCHLORIDE
     Indication: DEPRESSION
     Dosage: PRIOR TO 2012
     Route: 048

REACTIONS (4)
  - Panic attack [None]
  - Product substitution issue [None]
  - Depression [None]
  - Anxiety [None]
